FAERS Safety Report 5092818-X (Version None)
Quarter: 2006Q3

REPORT INFORMATION
  Report Type: 
  Country: None (occurrence: None)
  Receive Date: 20060727
  Receipt Date: 20060421
  Transmission Date: 20061208
  Serious: Yes (Other)
  Sender: FDA-Public Use
  Company Number: 2006056076

PATIENT
  Sex: Female
  Weight: 56.6996 kg

DRUGS (5)
  1. LYRICA [Suspect]
     Indication: NEURALGIA
     Dosage: 75 (25 MG, 3 IN 1 D)
     Dates: start: 20060401
  2. ALTACE [Concomitant]
  3. CALCIUM (CALCIUM) [Concomitant]
  4. EXCEDRIN EXTRA STRENGTH (ACETYLSALICYLIC ACID, CAFFEINE, PARACETAMOL) [Concomitant]
  5. VITAMIN B12 [Concomitant]

REACTIONS (2)
  - FATIGUE [None]
  - PAIN [None]
